FAERS Safety Report 8607735-5 (Version None)
Quarter: 2012Q3

REPORT INFORMATION
  Report Type: 
  Country: None (occurrence: None)
  Receive Date: 20120821
  Receipt Date: 20120809
  Transmission Date: 20120928
  Serious: Yes (Hospitalization, Other)
  Sender: FDA-Public Use
  Company Number: PHEH2012US015991

PATIENT
  Sex: Male

DRUGS (9)
  1. BUSPIRONE HCL [Concomitant]
  2. ACYCLOVIR [Concomitant]
  3. ACETAMINOPHEN [Concomitant]
  4. MINOCYCLINE HCL [Concomitant]
  5. BUSPAR [Concomitant]
  6. ERYTHROMYCIN [Concomitant]
  7. FAMOTIDINE [Concomitant]
  8. TRILEPTAL [Suspect]
     Indication: DEPRESSION
     Dosage: 150 MG, TID
     Route: 048
     Dates: start: 20060116
  9. SEROQUEL [Concomitant]

REACTIONS (33)
  - AFFECTIVE DISORDER [None]
  - OROPHARYNGEAL PAIN [None]
  - CONJUNCTIVITIS [None]
  - ERYTHEMA [None]
  - EPISTAXIS [None]
  - INFLUENZA [None]
  - PHARYNGEAL INFLAMMATION [None]
  - ACNE [None]
  - ABDOMINAL PAIN [None]
  - DEHYDRATION [None]
  - CHEILITIS [None]
  - VIRAL INFECTION [None]
  - FATIGUE [None]
  - MUCOSAL INFLAMMATION [None]
  - STEVENS-JOHNSON SYNDROME [None]
  - PYREXIA [None]
  - VISION BLURRED [None]
  - RASH [None]
  - DRY EYE [None]
  - MALAISE [None]
  - MYOPIA [None]
  - CHILLS [None]
  - VOMITING [None]
  - KAWASAKI'S DISEASE [None]
  - LIP PAIN [None]
  - RHINITIS ALLERGIC [None]
  - HEADACHE [None]
  - SKIN LESION [None]
  - COUGH [None]
  - URETHRITIS [None]
  - DYSURIA [None]
  - ORAL PAIN [None]
  - OCULAR HYPERAEMIA [None]
